FAERS Safety Report 8109912 (Version 2)
Quarter: 2012Q4

REPORT INFORMATION
  Report Type: 
  Country: JP (occurrence: JP)
  Receive Date: 20110826
  Receipt Date: 20121119
  Transmission Date: 20130627
  Serious: Yes (Other)
  Sender: FDA-Public Use
  Company Number: JP-SANTEN INC.-INC-11-000028

PATIENT
  Age: 27 Year
  Sex: Female

DRUGS (3)
  1. CRAVIT (LEVOFLOXACIN 0.5%) [Suspect]
     Indication: CONJUNCTIVITIS BACTERIAL
     Route: 061
     Dates: start: 200907, end: 200907
  2. CRAVIT (LEVOFLOXACIN 0.5%) [Suspect]
     Route: 061
     Dates: start: 20110110
  3. RINDERON-A [Concomitant]
     Indication: CONJUNCTIVITIS BACTERIAL
     Route: 061

REACTIONS (7)
  - Dyspnoea [Recovered/Resolved]
  - Urticaria contact [Recovered/Resolved]
  - Conjunctival hyperaemia [Recovered/Resolved]
  - Rhinorrhoea [Recovered/Resolved]
  - Sneezing [Recovered/Resolved]
  - Face oedema [Recovered/Resolved]
  - Rash pruritic [Recovered/Resolved]
